FAERS Safety Report 9471453 (Version 1)
Quarter: 2013Q3

REPORT INFORMATION
  Report Type: Spontaneous
  Country: BR (occurrence: BR)
  Receive Date: 20130822
  Receipt Date: 20130822
  Transmission Date: 20140515
  Serious: Yes (Other)
  Sender: FDA-Public Use
  Company Number: PHHY2013BR091038

PATIENT
  Age: 77 Year
  Sex: Female

DRUGS (1)
  1. CODATEN [Suspect]
     Indication: SPINAL PAIN
     Dosage: 1 DF, Q12H
     Route: 048
     Dates: start: 20130802

REACTIONS (10)
  - Faecal incontinence [Recovered/Resolved]
  - Gastrointestinal disorder [Recovered/Resolved]
  - Tachycardia [Recovered/Resolved]
  - Syncope [Recovered/Resolved]
  - Vomiting [Recovered/Resolved]
  - Abdominal pain [Recovered/Resolved]
  - Headache [Recovered/Resolved]
  - Diarrhoea [Recovered/Resolved]
  - Dizziness [Recovered/Resolved]
  - Palpitations [Recovered/Resolved]
